FAERS Safety Report 13689038 (Version 1)
Quarter: 2017Q2

REPORT INFORMATION
  Report Type: Spontaneous
  Country: US (occurrence: US)
  Receive Date: 20170624
  Receipt Date: 20170624
  Transmission Date: 20170830
  Serious: Yes (Other)
  Sender: FDA-Public Use
  Company Number: None

PATIENT
  Age: 48 Year
  Sex: Male
  Weight: 111.6 kg

DRUGS (6)
  1. WHOLE FOOD VITAMIN FOR MEN [Concomitant]
  2. GLYBURIDE. [Concomitant]
     Active Substance: GLYBURIDE
  3. CITALIPRAM [Concomitant]
  4. LANTUS [Suspect]
     Active Substance: INSULIN GLARGINE
     Indication: DIABETES MELLITUS INADEQUATE CONTROL
     Dosage: ?          OTHER STRENGTH:ML;QUANTITY:1 INJECTION(S);?
     Route: 058
     Dates: start: 20160505, end: 20170624
  5. METFORMIN [Concomitant]
     Active Substance: METFORMIN HYDROCHLORIDE
  6. LYSINIPRIL WITH HCTZ [Concomitant]

REACTIONS (3)
  - Hypoaesthesia oral [None]
  - Dysgeusia [None]
  - Blood glucose decreased [None]

NARRATIVE: CASE EVENT DATE: 20170623
